FAERS Safety Report 6135060-3 (Version None)
Quarter: 2009Q1

REPORT INFORMATION
  Report Type: 
  Country: None (occurrence: None)
  Receive Date: 20090327
  Receipt Date: 20090327
  Transmission Date: 20090719
  Serious: Yes (Hospitalization, Other)
  Sender: FDA-Public Use
  Company Number: US-PFIZER INC-2009188457

PATIENT
  Sex: Female
  Weight: 47 kg

DRUGS (4)
  1. CORTEF [Suspect]
     Indication: BLOOD CORTISOL ABNORMAL
     Dosage: 15 MG, 2X/DAY
     Dates: end: 20080901
  2. CORTEF [Suspect]
     Indication: MENOPAUSE
  3. HYDROCORTISONE [Suspect]
     Indication: BLOOD CORTISOL ABNORMAL
     Dosage: UNK
     Dates: end: 20080901
  4. HYDROCORTISONE [Suspect]
     Indication: MENOPAUSE

REACTIONS (17)
  - ADDISON'S DISEASE [None]
  - BONE DISORDER [None]
  - CATARACT [None]
  - CHORIORETINITIS [None]
  - DEFORMITY [None]
  - DYSURIA [None]
  - EYE SWELLING [None]
  - HEADACHE [None]
  - HEART RATE INCREASED [None]
  - HYPERSENSITIVITY [None]
  - JOINT SWELLING [None]
  - MALAISE [None]
  - MIDDLE INSOMNIA [None]
  - OROPHARYNGEAL PAIN [None]
  - PAIN [None]
  - SKIN DISCOLOURATION [None]
  - TOXOPLASMOSIS [None]
